FAERS Safety Report 21798129 (Version 1)
Quarter: 2022Q4

REPORT INFORMATION
  Report Type: Spontaneous
  Country: US (occurrence: US)
  Receive Date: 20221230
  Receipt Date: 20221230
  Transmission Date: 20230113
  Serious: No
  Sender: FDA-Public Use
  Company Number: US-BIOGEN-2022BI01162885

PATIENT
  Sex: Female

DRUGS (5)
  1. TECFIDERA [Suspect]
     Active Substance: DIMETHYL FUMARATE
     Indication: Multiple sclerosis
     Route: 050
     Dates: start: 20221018
  2. TECFIDERA [Suspect]
     Active Substance: DIMETHYL FUMARATE
     Route: 050
     Dates: start: 20150115, end: 20190601
  3. PLENVU [Concomitant]
     Active Substance: ASCORBIC ACID\POLYETHYLENE GLYCOL 3350\POTASSIUM CHLORIDE\SODIUM ASCORBATE\SODIUM CHLORIDE\SODIUM SU
     Indication: Product used for unknown indication
     Route: 050
  4. Probiotic cap [Concomitant]
     Indication: Product used for unknown indication
     Route: 050
  5. TRULANCE [Concomitant]
     Active Substance: PLECANATIDE
     Indication: Product used for unknown indication
     Route: 050

REACTIONS (3)
  - Product dose omission issue [Not Recovered/Not Resolved]
  - Product container issue [Unknown]
  - Flushing [Not Recovered/Not Resolved]

NARRATIVE: CASE EVENT DATE: 20220101
